FAERS Safety Report 19298739 (Version 2)
Quarter: 2021Q2

REPORT INFORMATION
  Report Type: Spontaneous
  Country: US (occurrence: US)
  Receive Date: 20210525
  Receipt Date: 20210615
  Transmission Date: 20210717
  Serious: Yes (Other)
  Sender: FDA-Public Use
  Company Number: US-AUROBINDO-AUR-APL-2021-009839

PATIENT
  Age: 50 Year
  Sex: Female
  Weight: 56 kg

DRUGS (2)
  1. ALENDRONATE SODIUM TABLETS USP 70MG [Suspect]
     Active Substance: ALENDRONATE SODIUM
     Indication: BONE DENSITY INCREASED
     Dosage: 1 DOSAGE FORM, EVERY WEEK
     Route: 048
     Dates: start: 202002
  2. ALENDRONATE SODIUM TABLETS USP 70MG [Suspect]
     Active Substance: ALENDRONATE SODIUM
     Indication: OSTEOPOROSIS

REACTIONS (5)
  - Drug ineffective [Unknown]
  - Paralysis [Recovered/Resolved]
  - Diarrhoea [Recovered/Resolved]
  - Bone density decreased [Recovered/Resolved]
  - Groin pain [Recovered/Resolved]
